FAERS Safety Report 5955333-4 (Version None)
Quarter: 2008Q4

REPORT INFORMATION
  Report Type: 
  Country: None (occurrence: None)
  Receive Date: 20081031
  Receipt Date: 20080714
  Transmission Date: 20090506
  Serious: No
  Sender: FDA-Public Use
  Company Number: 2008PV036155

PATIENT
  Age: 57 Year
  Sex: Male

DRUGS (3)
  1. SYMLIN [Suspect]
     Indication: TYPE 2 DIABETES MELLITUS
     Dosage: 120 MCG; TID; SC
     Route: 058
     Dates: start: 20080701
  2. NSULIN DETEMIR [Concomitant]
  3. HUMALOG [Concomitant]

REACTIONS (1)
  - DIARRHOEA [None]
